FAERS Safety Report 24888364 (Version 1)
Quarter: 2025Q1

REPORT INFORMATION
  Report Type: Spontaneous
  Country: US (occurrence: None)
  Receive Date: 20250126
  Receipt Date: 20250126
  Transmission Date: 20250408
  Serious: Yes (Disabling)
  Sender: FDA-CTU
  Company Number: None

PATIENT
  Age: 25 Year
  Sex: Female
  Weight: 67.5 kg

DRUGS (2)
  1. AJOVY [Suspect]
     Active Substance: FREMANEZUMAB-VFRM
     Indication: Migraine
     Route: 030
     Dates: start: 20241222, end: 20241222
  2. TRAZODONE [Concomitant]
     Active Substance: TRAZODONE HYDROCHLORIDE

REACTIONS (16)
  - Erythema [None]
  - Swelling face [None]
  - Feeling hot [None]
  - Tremor [None]
  - Injection related reaction [None]
  - Loss of personal independence in daily activities [None]
  - Chills [None]
  - Hyperhidrosis [None]
  - Paraesthesia [None]
  - Paraesthesia [None]
  - Palpitations [None]
  - Pain [None]
  - Insomnia [None]
  - Panic attack [None]
  - Brain fog [None]
  - Arthralgia [None]

NARRATIVE: CASE EVENT DATE: 20241224
